FAERS Safety Report 9228221 (Version 2)
Quarter: 2013Q2

REPORT INFORMATION
  Report Type: Report from Study
  Country: CA (occurrence: CA)
  Receive Date: 20130412
  Receipt Date: 20130502
  Transmission Date: 20140414
  Serious: Yes (Death, Hospitalization)
  Sender: FDA-Public Use
  Company Number: CA-ROCHE-1208808

PATIENT
  Age: 76 Year
  Sex: Male

DRUGS (2)
  1. ALTEPLASE [Suspect]
     Indication: CAROTID ARTERY OCCLUSION
     Dosage: AS 10% LOADING DOSE
     Route: 042
  2. HEPARIN [Concomitant]
     Dosage: 2000 UNITS IN BEGINING AND THEN 500 UNIT PER HOUR
     Route: 042

REACTIONS (3)
  - Carotid artery occlusion [Fatal]
  - Intracardiac thrombus [Unknown]
  - Pulmonary embolism [Unknown]
